FAERS Safety Report 6916433-5 (Version None)
Quarter: 2010Q3

REPORT INFORMATION
  Report Type: 
  Country: None (occurrence: None)
  Receive Date: 20100810
  Receipt Date: 20100727
  Transmission Date: 20110219
  Serious: Yes (Other)
  Sender: FDA-Public Use
  Company Number: PHHY2010CA49638

PATIENT
  Sex: Female

DRUGS (7)
  1. CLOZARIL [Suspect]
     Indication: ESSENTIAL TREMOR
     Dosage: UP TO 50 MG, QHS
     Route: 048
     Dates: start: 20090501, end: 20100701
  2. ASPIRIN [Concomitant]
  3. COZAAR [Concomitant]
  4. RATIO-ATENOL [Concomitant]
  5. DIDRONEL [Concomitant]
  6. LIPITOR [Concomitant]
  7. CAPERGYL [Concomitant]

REACTIONS (3)
  - COGNITIVE DISORDER [None]
  - DRUG INEFFECTIVE [None]
  - MEMORY IMPAIRMENT [None]
